FAERS Safety Report 6636210-2 (Version None)
Quarter: 2010Q1

REPORT INFORMATION
  Report Type: 
  Country: None (occurrence: None)
  Receive Date: 20100316
  Receipt Date: 20100304
  Transmission Date: 20100710
  Serious: Yes (Death, Other)
  Sender: FDA-Public Use
  Company Number: JP-PFIZER INC-2010025131

PATIENT
  Age: 82 Year
  Sex: Female

DRUGS (20)
  1. UNASYN [Suspect]
     Indication: PNEUMONIA
     Dosage: 3G/DAY
     Route: 042
     Dates: start: 20100222, end: 20100222
  2. EVISTA [Concomitant]
     Indication: OSTEOPOROSIS
     Route: 048
     Dates: start: 20080421
  3. LANIRAPID [Concomitant]
     Indication: ATRIAL FIBRILLATION
     Route: 048
     Dates: start: 20080421, end: 20090910
  4. OLMESARTAN MEDOXOMIL [Concomitant]
     Indication: HYPERTENSION
     Route: 048
     Dates: start: 20080421
  5. LASIX [Concomitant]
     Indication: CARDIAC FAILURE
     Route: 048
     Dates: start: 20080421
  6. MAINTATE [Concomitant]
     Indication: ATRIAL FIBRILLATION
     Route: 048
     Dates: start: 20080421
  7. WARFARIN [Concomitant]
     Indication: ATRIAL FIBRILLATION
     Route: 048
     Dates: start: 20080421
  8. ALDACTONE [Concomitant]
     Indication: CARDIAC FAILURE
     Route: 048
     Dates: start: 20080421, end: 20081216
  9. STARSIS [Concomitant]
     Indication: DIABETES MELLITUS
     Route: 048
     Dates: start: 20080421
  10. OMEPRAL [Concomitant]
     Indication: REFLUX OESOPHAGITIS
     Route: 048
     Dates: start: 20080421
  11. MOBIC [Concomitant]
     Indication: RHEUMATOID ARTHRITIS
     Route: 048
     Dates: start: 20080421
  12. RIMATIL [Concomitant]
     Indication: RHEUMATOID ARTHRITIS
     Route: 048
     Dates: start: 20080421
  13. MYSLEE [Concomitant]
     Indication: INSOMNIA
     Route: 048
     Dates: start: 20080421
  14. ITOROL [Concomitant]
     Indication: ANGINA PECTORIS
     Route: 048
     Dates: start: 20080521
  15. ZYLORIC ^FAES^ [Concomitant]
     Indication: HYPERURICAEMIA
     Route: 048
     Dates: start: 20090812
  16. ZETIA [Concomitant]
     Indication: HYPERCHOLESTEROLAEMIA
     Route: 048
     Dates: start: 20090610
  17. RESPLEN [Concomitant]
     Indication: WHEEZING
     Dates: start: 20100217
  18. MUCODYNE [Concomitant]
     Indication: WHEEZING
     Dates: start: 20100217
  19. HOKUNALIN [Concomitant]
     Indication: WHEEZING
     Dates: start: 20100217
  20. NEOPHYLLIN [Concomitant]
     Indication: ASTHMA
     Dosage: UNK
     Route: 042
     Dates: start: 20100222, end: 20100222

REACTIONS (1)
  - ANAPHYLACTIC SHOCK [None]
